FAERS Safety Report 8032183-9 (Version None)
Quarter: 2012Q1

REPORT INFORMATION
  Report Type: 
  Country: None (occurrence: None)
  Receive Date: 20120110
  Receipt Date: 20120105
  Transmission Date: 20120608
  Serious: Yes (Hospitalization)
  Sender: FDA-Public Use
  Company Number: US-BIOGENIDEC-2011BI003057

PATIENT
  Age: 37 Year
  Sex: Female
  Weight: 90 kg

DRUGS (1)
  1. TYSABRI [Suspect]
     Indication: MULTIPLE SCLEROSIS
     Route: 042
     Dates: start: 20060926

REACTIONS (6)
  - IMPAIRED HEALING [None]
  - SKIN COSMETIC PROCEDURE [None]
  - OPEN WOUND [None]
  - HYPERHIDROSIS [None]
  - TREMOR [None]
  - DYSARTHRIA [None]
